FAERS Safety Report 9394658 (Version 1)
Quarter: 2013Q3

REPORT INFORMATION
  Report Type: Spontaneous
  Country: US (occurrence: US)
  Receive Date: 20130711
  Receipt Date: 20130711
  Transmission Date: 20140515
  Serious: Yes (Hospitalization, Other)
  Sender: FDA-Public Use
  Company Number: US-SANOFI-AVENTIS-2013SA069165

PATIENT
  Age: 77 Year
  Sex: Female

DRUGS (2)
  1. LANTUS SOLOSTAR [Suspect]
     Indication: TYPE 2 DIABETES MELLITUS
     Dosage: TAKEN FROM - SEVERAL YEARS?DOSE - 6-10 UNITS
     Route: 065
  2. SOLOSTAR [Suspect]
     Indication: TYPE 2 DIABETES MELLITUS
     Dosage: TAKEN FROM - SEVERAL YEARS

REACTIONS (4)
  - Fall [Unknown]
  - Upper limb fracture [Unknown]
  - Pain [Unknown]
  - Gallbladder disorder [Unknown]
